FAERS Safety Report 24407865 (Version 1)
Quarter: 2024Q4

REPORT INFORMATION
  Report Type: Spontaneous
  Country: US (occurrence: US)
  Receive Date: 20241007
  Receipt Date: 20241007
  Transmission Date: 20250115
  Serious: No
  Sender: NEUROCRINE BIOSCIENCES
  Company Number: US-NEUROCRINE BIOSCIENCES INC.-2024NBI09592

PATIENT
  Age: 47 Year
  Sex: Female

DRUGS (2)
  1. INGREZZA [Suspect]
     Active Substance: VALBENAZINE
     Indication: Huntington^s disease
     Dosage: 40 MILLIGRAM
     Route: 065
  2. INGREZZA [Suspect]
     Active Substance: VALBENAZINE
     Dosage: UNK
     Route: 048

REACTIONS (1)
  - Rash [Unknown]
